FAERS Safety Report 15752186 (Version 2)
Quarter: 2019Q1

REPORT INFORMATION
  Report Type: Spontaneous
  Country: BE (occurrence: BE)
  Receive Date: 20181221
  Receipt Date: 20190115
  Transmission Date: 20190417
  Serious: Yes (Other)
  Sender: FDA-Public Use
  Company Number: PHHY2018BE187487

PATIENT

DRUGS (5)
  1. ADALIMUMAB [Suspect]
     Active Substance: ADALIMUMAB
     Indication: FOETAL EXPOSURE DURING PREGNANCY
     Dosage: 40 MG, UNK
     Route: 063
  2. ISONIAZID. [Suspect]
     Active Substance: ISONIAZID
     Indication: EXPOSURE VIA BREAST MILK
     Dosage: 300 MG, QD
     Route: 063
  3. VITAMIN B6 [Suspect]
     Active Substance: PYRIDOXINE HYDROCHLORIDE
     Indication: EXPOSURE VIA BREAST MILK
     Route: 063
  4. METHYLPREDNISOLONE. [Suspect]
     Active Substance: METHYLPREDNISOLONE
     Indication: FOETAL EXPOSURE DURING PREGNANCY
     Dosage: 32 MG, QD
     Route: 063
  5. ADALIMUMAB [Suspect]
     Active Substance: ADALIMUMAB
     Indication: MATERNAL EXPOSURE TIMING UNSPECIFIED
     Dosage: UNK
     Route: 064

REACTIONS (4)
  - Omphalitis [Recovered/Resolved]
  - Exposure via breast milk [Unknown]
  - Foetal exposure during pregnancy [Unknown]
  - Neutropenia [Recovered/Resolved]
